FAERS Safety Report 10077702 (Version 2)
Quarter: 2014Q2

REPORT INFORMATION
  Report Type: Spontaneous
  Country: US (occurrence: US)
  Receive Date: 20140414
  Receipt Date: 20140501
  Transmission Date: 20141212
  Serious: No
  Sender: FDA-Public Use
  Company Number: US-009507513-1404USA007651

PATIENT
  Age: 27 Year
  Sex: Female

DRUGS (2)
  1. NUVARING [Suspect]
     Indication: CONTRACEPTION
     Dosage: 3 WEEKS IN, 1 WEEK OUT, 1 RING
     Route: 067
     Dates: start: 201307
  2. NUVARING [Suspect]
     Indication: MENSTRUATION IRREGULAR

REACTIONS (3)
  - Device breakage [Unknown]
  - Off label use [Unknown]
  - No adverse event [Unknown]
